FAERS Safety Report 17519871 (Version 1)
Quarter: 2020Q1

REPORT INFORMATION
  Report Type: Spontaneous
  Country: US (occurrence: US)
  Receive Date: 20200309
  Receipt Date: 20200309
  Transmission Date: 20200409
  Serious: No
  Sender: FDA-Public Use
  Company Number: None

PATIENT
  Age: 59 Year
  Sex: Female
  Weight: 90 kg

DRUGS (1)
  1. TRAMADOL. [Suspect]
     Active Substance: TRAMADOL
     Indication: LIMB OPERATION
     Dosage: ?          QUANTITY:10 TABLET(S);?
     Route: 048
     Dates: start: 20200305, end: 20200306

REACTIONS (6)
  - Pruritus [None]
  - Dizziness [None]
  - Diarrhoea [None]
  - Somnolence [None]
  - Vomiting [None]
  - Near death experience [None]

NARRATIVE: CASE EVENT DATE: 20200305
